FAERS Safety Report 10997530 (Version 1)
Quarter: 2015Q2

REPORT INFORMATION
  Report Type: Spontaneous
  Country: US (occurrence: US)
  Receive Date: 20150408
  Receipt Date: 20150408
  Transmission Date: 20150821
  Serious: No
  Sender: FDA-Public Use
  Company Number: US-BANPHARM-20142809

PATIENT
  Age: 67 Year
  Sex: Female
  Weight: 61.24 kg

DRUGS (2)
  1. GENERIC CALCIUM + D [Concomitant]
  2. ALEVE [Suspect]
     Active Substance: NAPROXEN SODIUM
     Indication: BACK PAIN
     Dosage: 1 DF, BID,
     Route: 048
     Dates: start: 20140424, end: 20140425

REACTIONS (3)
  - Palpitations [Recovered/Resolved]
  - Rash [Recovered/Resolved]
  - Rash pruritic [Recovered/Resolved]

NARRATIVE: CASE EVENT DATE: 20140425
